FAERS Safety Report 6460480-7 (Version None)
Quarter: 2009Q4

REPORT INFORMATION
  Report Type: 
  Country: None (occurrence: None)
  Receive Date: 20091130
  Receipt Date: 20091118
  Transmission Date: 20100525
  Serious: Yes (Death)
  Sender: FDA-Public Use
  Company Number: JP-ROCHE-671137

PATIENT
  Age: 57 Year
  Sex: Female

DRUGS (1)
  1. XELODA [Suspect]
     Indication: BREAST CANCER METASTATIC
     Dosage: DRUG NAME: XELODA 300(CAPECITABINE) 3 WEEKS ADMINISTRATION FOLLOWED BY 1 WEEK REST
     Route: 048

REACTIONS (1)
  - DISEASE PROGRESSION [None]
